FAERS Safety Report 9319403 (Version 1)
Quarter: 2013Q2

REPORT INFORMATION
  Report Type: Spontaneous
  Country: US (occurrence: None)
  Receive Date: 20130524
  Receipt Date: 20130524
  Transmission Date: 20140414
  Serious: Yes (Other)
  Sender: FDA-Public Use
  Company Number: 2013SA051441

PATIENT
  Age: 56 Year
  Sex: Female

DRUGS (1)
  1. ICY HOT CREAM [Suspect]
     Dates: start: 20130515

REACTIONS (2)
  - Burns second degree [None]
  - Blister [None]
